FAERS Safety Report 5374131-6 (Version None)
Quarter: 2007Q2

REPORT INFORMATION
  Report Type: 
  Country: None (occurrence: None)
  Receive Date: 20070627
  Receipt Date: 20070613
  Transmission Date: 20071010
  Serious: Yes (Other)
  Sender: FDA-Public Use
  Company Number: 2007RR-08097

PATIENT
  Age: 73 Year
  Sex: Female

DRUGS (5)
  1. LORATADINE [Suspect]
     Indication: HYPERSENSITIVITY
     Dosage: 10 MG, QD
  2. AMIODARONE (AMIODARONE) UNKNOWN [Suspect]
     Indication: ATRIAL FIBRILLATION
     Dosage: 200 MG, QD
  3. CILAZAPRIL [Concomitant]
  4. PRAVASTATIN [Concomitant]
  5. WARFARIN SODIUM [Concomitant]

REACTIONS (5)
  - DIASTOLIC DYSFUNCTION [None]
  - ELECTROCARDIOGRAM QT PROLONGED [None]
  - SYNCOPE [None]
  - TORSADE DE POINTES [None]
  - VENTRICULAR HYPERTROPHY [None]
